FAERS Safety Report 5176442-6 (Version None)
Quarter: 2006Q4

REPORT INFORMATION
  Report Type: 
  Country: None (occurrence: None)
  Receive Date: 20061215
  Receipt Date: 20061106
  Transmission Date: 20070319
  Serious: Yes (Hospitalization)
  Sender: FDA-Public Use
  Company Number: BR-BRISTOL-MYERS SQUIBB COMPANY-13568555

PATIENT
  Age: 45 Year
  Sex: Female

DRUGS (4)
  1. ABATACEPT [Suspect]
     Indication: RHEUMATOID ARTHRITIS
     Route: 042
     Dates: start: 20040525
  2. METHOTREXATE [Concomitant]
     Dates: start: 20010327
  3. PREDNISONE TAB [Concomitant]
     Dates: start: 20021120
  4. DICLOFENAC POTASSIUM [Concomitant]
     Dates: start: 20030512

REACTIONS (1)
  - MYOCARDIAL INFARCTION [None]
